FAERS Safety Report 5556869-0 (Version None)
Quarter: 2007Q4

REPORT INFORMATION
  Report Type: 
  Country: None (occurrence: None)
  Receive Date: 20071214
  Receipt Date: 20071207
  Transmission Date: 20080405
  Serious: Yes (Hospitalization, Other)
  Sender: FDA-Public Use
  Company Number: PHBS2007BR20640

PATIENT
  Sex: Male
  Weight: 13 kg

DRUGS (1)
  1. TEGRETOL [Suspect]
     Indication: ACCIDENTAL EXPOSURE
     Dosage: 50 ML
     Route: 048
     Dates: start: 20071207

REACTIONS (2)
  - ACCIDENTAL EXPOSURE [None]
  - GASTRIC LAVAGE [None]
